FAERS Safety Report 9349286 (Version 1)
Quarter: 2013Q2

REPORT INFORMATION
  Report Type: Spontaneous
  Country: HK (occurrence: HK)
  Receive Date: 20130614
  Receipt Date: 20130614
  Transmission Date: 20140414
  Serious: Yes (Other)
  Sender: FDA-Public Use
  Company Number: HK-ABBOTT-13X-075-1104084-00

PATIENT
  Sex: 0

DRUGS (1)
  1. EPILIM CHRONO [Suspect]
     Indication: EPILEPSY
     Dosage: EXTENDED RELEASE, 1500 MILLIGRAM(S) ;DAILY
     Route: 048

REACTIONS (2)
  - Medication residue present [Unknown]
  - Epilepsy [Recovered/Resolved]
